FAERS Safety Report 8988345 (Version 1)
Quarter: 2012Q4

REPORT INFORMATION
  Report Type: Spontaneous
  Country: US (occurrence: None)
  Receive Date: 20121220
  Receipt Date: 20121220
  Transmission Date: 20130627
  Serious: Yes (Hospitalization)
  Sender: FDA-Public Use
  Company Number: None

PATIENT
  Age: 77 Year
  Sex: Male
  Weight: 75 kg

DRUGS (10)
  1. CARBOPLATIN [Suspect]
     Indication: METASTATIC COLORECTAL CANCER
     Dosage: auc 5 -370mg- once every 21 days iv drip
     Route: 041
     Dates: start: 20121106, end: 20121211
  2. PAZOPANIB [Suspect]
     Indication: METASTATIC COLORECTAL CANCER
     Dosage: 200 mg day 2-21 cycle 1 po
     Route: 048
     Dates: start: 20121106, end: 20121126
  3. ACETAMINOPHEN-OXYCODONE [Concomitant]
  4. ORPHENADRINE CITRATE [Concomitant]
  5. NAPROXEN SODIUM [Concomitant]
  6. METHOCARBAMOL [Concomitant]
  7. FINASTERIDE [Concomitant]
  8. SIMVASTATIN [Concomitant]
  9. WARFARIN [Concomitant]
  10. PREGABALIN [Concomitant]

REACTIONS (3)
  - Platelet count decreased [None]
  - Atrioventricular block first degree [None]
  - Pain [None]
